FAERS Safety Report 13124873 (Version 1)
Quarter: 2017Q1

REPORT INFORMATION
  Report Type: Not Available
  Country: CN (occurrence: CN)
  Receive Date: 20170118
  Receipt Date: 20170118
  Transmission Date: 20170428
  Serious: Yes (Hospitalization, Disabling)
  Sender: FDA-Public Use
  Company Number: CN-NAPPMUNDI-GBR-2017-0042811

PATIENT
  Age: 65 Year
  Sex: Male
  Weight: 60 kg

DRUGS (1)
  1. OXYCONTIN [Suspect]
     Active Substance: OXYCODONE HYDROCHLORIDE
     Indication: ANALGESIC THERAPY
     Dosage: 10 MG, BID
     Route: 048
     Dates: start: 20161118, end: 20161123

REACTIONS (3)
  - Nausea [Recovering/Resolving]
  - Gastric haemorrhage [Recovering/Resolving]
  - Vomiting [Recovering/Resolving]

NARRATIVE: CASE EVENT DATE: 20161121
